FAERS Safety Report 14370534 (Version 1)
Quarter: 2018Q1

REPORT INFORMATION
  Report Type: Spontaneous
  Country: US (occurrence: US)
  Receive Date: 20180109
  Receipt Date: 20180109
  Transmission Date: 20180509
  Serious: No
  Sender: FDA-Public Use
  Company Number: None

PATIENT
  Age: 52 Year
  Sex: Male

DRUGS (1)
  1. HUMIRA [Suspect]
     Active Substance: ADALIMUMAB
     Indication: PSORIASIS
     Route: 058
     Dates: start: 20170401

REACTIONS (5)
  - Restlessness [None]
  - Product quality issue [None]
  - Chills [None]
  - Pain [None]
  - Dyspnoea [None]

NARRATIVE: CASE EVENT DATE: 20171204
